FAERS Safety Report 15046145 (Version 2)
Quarter: 2018Q2

REPORT INFORMATION
  Report Type: Spontaneous
  Country: TR (occurrence: TR)
  Receive Date: 20180621
  Receipt Date: 20180625
  Transmission Date: 20180711
  Serious: No
  Sender: FDA-Public Use
  Company Number: TR-PFIZER INC-2018249879

PATIENT
  Sex: Female

DRUGS (2)
  1. XANAX [Suspect]
     Active Substance: ALPRAZOLAM
     Dosage: ONE TABLET EVERY DAY DURING THE FASTING TIME
  2. XANAX [Suspect]
     Active Substance: ALPRAZOLAM
     Indication: INSOMNIA
     Dosage: HALF A TABLET EVERY 2-3 BEFORE GOING TO BED

REACTIONS (2)
  - Vaginal haemorrhage [Not Recovered/Not Resolved]
  - Balance disorder [Unknown]
